FAERS Safety Report 23122816 (Version 1)
Quarter: 2023Q4

REPORT INFORMATION
  Report Type: Report from Study
  Country: CO (occurrence: CO)
  Receive Date: 20231030
  Receipt Date: 20231030
  Transmission Date: 20240109
  Serious: Yes (Hospitalization, Other)
  Sender: FDA-Public Use
  Company Number: CO-JNJFOC-20230854278

PATIENT
  Age: 71 Year
  Sex: Female
  Weight: 42 kg

DRUGS (1)
  1. SIMPONI [Suspect]
     Active Substance: GOLIMUMAB
     Indication: Rheumatoid arthritis
     Dosage: LATEST APPLICATION: 16-JUL-2023
     Route: 058
     Dates: start: 20220826

REACTIONS (2)
  - Hernia [Unknown]
  - Appendicitis [Unknown]
